FAERS Safety Report 13910753 (Version 1)
Quarter: 2017Q3

REPORT INFORMATION
  Report Type: Spontaneous
  Country: FR (occurrence: FR)
  Receive Date: 20170828
  Receipt Date: 20170828
  Transmission Date: 20171127
  Serious: Yes (Other)
  Sender: FDA-Public Use
  Company Number: FR-TEVA-798501ROM

PATIENT
  Age: 55 Year
  Sex: Male

DRUGS (4)
  1. MABTHERA [Suspect]
     Active Substance: RITUXIMAB
     Indication: LYMPHOMA
     Dosage: 750 MILLIGRAM DAILY; THIRD COURSE OF R-MIV CHEMOTHERAPY PROTOCOL
     Route: 041
     Dates: start: 20160907, end: 20160907
  2. IFOSFAMIDE EG [Suspect]
     Active Substance: IFOSFAMIDE
     Indication: LYMPHOMA
     Dosage: 3000 MILLIGRAM DAILY; THIRD COURSE OF R-MIV CHEMOTHERAPY PROTOCOL
     Route: 041
     Dates: start: 20160907, end: 20160909
  3. MITOXANTRONE TEVA [Suspect]
     Active Substance: MITOXANTRONE HYDROCHLORIDE
     Indication: LYMPHOMA
     Dosage: 20 MILLIGRAM DAILY; THIRD COURSE OF R-MIV CHEMOTHERAPY PROTOCOL
     Route: 041
     Dates: start: 20160907, end: 20160907
  4. ETOPOSIDE TEVA [Suspect]
     Active Substance: ETOPOSIDE
     Indication: LYMPHOMA
     Dosage: 300 MILLIGRAM DAILY; THIRD COURSE OF R-MIV CHEMOTHERAPY PROTOCOL
     Route: 041
     Dates: start: 20160907, end: 20160909

REACTIONS (1)
  - Pancytopenia [Recovered/Resolved]

NARRATIVE: CASE EVENT DATE: 20160917
